FAERS Safety Report 24583379 (Version 1)
Quarter: 2024Q4

REPORT INFORMATION
  Report Type: Spontaneous
  Country: US (occurrence: US)
  Receive Date: 20241106
  Receipt Date: 20241106
  Transmission Date: 20250115
  Serious: No
  Sender: STRIDES
  Company Number: US-STRIDES ARCOLAB LIMITED-2024SP013271

PATIENT
  Sex: Female

DRUGS (5)
  1. TACROLIMUS [Suspect]
     Active Substance: TACROLIMUS
     Indication: Granuloma annulare
     Dosage: UNK
     Route: 065
  2. AZITHROMYCIN [Suspect]
     Active Substance: AZITHROMYCIN
     Indication: Granuloma annulare
     Dosage: UNK
     Route: 065
  3. CLOBETASOL [Concomitant]
     Active Substance: CLOBETASOL
     Indication: Granuloma annulare
     Dosage: UNK
     Route: 065
  4. FLUOCINONIDE [Concomitant]
     Active Substance: FLUOCINONIDE
     Indication: Granuloma annulare
     Dosage: UNK
     Route: 065
  5. HYDROXYCHLOROQUINE [Concomitant]
     Active Substance: HYDROXYCHLOROQUINE
     Indication: Granuloma annulare
     Dosage: UNK
     Route: 065

REACTIONS (1)
  - Off label use [Unknown]
